FAERS Safety Report 9221862 (Version 1)
Quarter: 2013Q2

REPORT INFORMATION
  Report Type: Spontaneous
  Country: GB (occurrence: None)
  Receive Date: 20130408
  Receipt Date: 20130408
  Transmission Date: 20140414
  Serious: Yes (Hospitalization)
  Sender: FDA-Public Use
  Company Number: SYM-2013-02299

PATIENT
  Age: 73 Year
  Sex: Female

DRUGS (2)
  1. FLUOROURACIL (FLUOROURACIL) (FLUOROURACIL) [Suspect]
     Indication: COLON CANCER
  2. OXALIPLATIN (OXALIPLATIN) (OXALIPLATIN) [Suspect]
     Indication: COLON CANCER

REACTIONS (1)
  - Posterior reversible encephalopathy syndrome [None]
